FAERS Safety Report 5453757-5 (Version None)
Quarter: 2007Q3

REPORT INFORMATION
  Report Type: 
  Country: None (occurrence: None)
  Receive Date: 20070917
  Receipt Date: 20070831
  Transmission Date: 20080115
  Serious: Yes (Other)
  Sender: FDA-Public Use
  Company Number: JP-ASTRAZENECA-2007AP05712

PATIENT
  Age: 68 Year
  Sex: Female

DRUGS (7)
  1. SEROQUEL [Suspect]
     Route: 048
     Dates: start: 20070624
  2. SEROQUEL [Suspect]
     Route: 048
     Dates: start: 20070624
  3. SEROQUEL [Suspect]
     Route: 048
     Dates: start: 20070822, end: 20070826
  4. SEROQUEL [Suspect]
     Route: 048
     Dates: start: 20070827
  5. SEDIEL [Suspect]
     Route: 048
     Dates: start: 20070701
  6. PAXIL [Concomitant]
  7. DORAL [Concomitant]
     Route: 048
     Dates: start: 20070701

REACTIONS (1)
  - LEUKOPENIA [None]
